FAERS Safety Report 9974143 (Version 1)
Quarter: 2014Q1

REPORT INFORMATION
  Report Type: Spontaneous
  Country: ES (occurrence: ES)
  Receive Date: 20140306
  Receipt Date: 20140306
  Transmission Date: 20141002
  Serious: Yes (Death, Life-Threatening, Hospitalization)
  Sender: FDA-Public Use
  Company Number: ES-GLAXOSMITHKLINE-B0963887A

PATIENT
  Age: 83 Year
  Sex: Female

DRUGS (1)
  1. LAMICTAL [Suspect]
     Indication: CYCLOTHYMIC DISORDER
     Dosage: 25MG THREE TIMES PER DAY
     Route: 048
     Dates: start: 20131127, end: 20131224

REACTIONS (3)
  - Stevens-Johnson syndrome [Recovered/Resolved]
  - Pneumonia [Fatal]
  - Anaemia [Unknown]
